FAERS Safety Report 16777685 (Version 1)
Quarter: 2019Q3

REPORT INFORMATION
  Report Type: Spontaneous
  Country: US (occurrence: US)
  Receive Date: 20190905
  Receipt Date: 20190905
  Transmission Date: 20191005
  Serious: Yes (Other)
  Sender: FDA-Public Use
  Company Number: US-GLAXOSMITHKLINE-US2019158386

PATIENT
  Sex: Female

DRUGS (1)
  1. BENLYSTA [Suspect]
     Active Substance: BELIMUMAB
     Indication: SYSTEMIC LUPUS ERYTHEMATOSUS
     Dosage: UNK
     Route: 042

REACTIONS (14)
  - Nausea [Unknown]
  - Tremor [Unknown]
  - Systemic lupus erythematosus [Unknown]
  - Feeling abnormal [Unknown]
  - Joint swelling [Unknown]
  - Drug ineffective [Unknown]
  - Fatigue [Unknown]
  - Cough [Unknown]
  - Muscle spasms [Unknown]
  - Dizziness [Unknown]
  - Nasal congestion [Unknown]
  - Pyrexia [Unknown]
  - Rhinorrhoea [Unknown]
  - Multiple allergies [Unknown]
